FAERS Safety Report 4364776-4 (Version None)
Quarter: 2004Q2

REPORT INFORMATION
  Report Type: 
  Country: None (occurrence: None)
  Receive Date: 20040521
  Receipt Date: 20040502
  Transmission Date: 20050107
  Serious: Yes (Death, Hospitalization)
  Sender: FDA-Public Use
  Company Number: USA040566525

PATIENT
  Age: 39 Year
  Sex: Female

DRUGS (3)
  1. ZYPREXA [Suspect]
     Indication: SCHIZOAFFECTIVE DISORDER
     Dosage: 5 MG AT BEDTIME
  2. ZOLOFT [Concomitant]
  3. DEPAKOTE [Concomitant]

REACTIONS (1)
  - OVERDOSE [None]
